FAERS Safety Report 5225313-5 (Version None)
Quarter: 2007Q1

REPORT INFORMATION
  Report Type: 
  Country: None (occurrence: None)
  Receive Date: 20070131
  Receipt Date: 20070124
  Transmission Date: 20070707
  Serious: Yes (Hospitalization)
  Sender: FDA-Public Use
  Company Number: DE-AVENTIS-200613498DE

PATIENT
  Age: 76 Year
  Sex: Female
  Weight: 61 kg

DRUGS (7)
  1. LANTUS [Suspect]
     Route: 058
     Dates: start: 20060801
  2. INSULIN BASAL                      /01097301/ [Concomitant]
     Dosage: DOSE: NOT REPORTED
     Route: 058
  3. ALPHA-LIPON ACID [Concomitant]
     Indication: DRUG USE FOR UNKNOWN INDICATION
     Route: 048
  4. CAPTOGAMMA HCT [Concomitant]
     Indication: HYPERTENSION
     Dosage: DOSE: 50/250
     Route: 048
  5. GLIMEPIRIDE [Concomitant]
     Route: 048
  6. NITRENDIPIN [Concomitant]
     Indication: HYPERTENSION
     Route: 048
  7. PRAVASTATIN [Concomitant]
     Route: 048

REACTIONS (1)
  - PEMPHIGOID [None]
